FAERS Safety Report 13641969 (Version 1)
Quarter: 2017Q2

REPORT INFORMATION
  Report Type: Spontaneous
  Country: US (occurrence: US)
  Receive Date: 20170610
  Receipt Date: 20170610
  Transmission Date: 20170830
  Serious: Yes (Other)
  Sender: FDA-Public Use
  Company Number: None

PATIENT
  Age: 30 Year
  Sex: Female
  Weight: 85.81 kg

DRUGS (1)
  1. SUBOXONE [Suspect]
     Active Substance: BUPRENORPHINE HYDROCHLORIDE\NALOXONE HYDROCHLORIDE
     Indication: DRUG USE DISORDER
     Route: 002
     Dates: start: 20100809

REACTIONS (6)
  - Pharyngeal oedema [None]
  - Rash [None]
  - Swollen tongue [None]
  - Tongue ulceration [None]
  - Rash pruritic [None]
  - Pharyngeal ulceration [None]

NARRATIVE: CASE EVENT DATE: 20100809
